FAERS Safety Report 6082514-4 (Version None)
Quarter: 2009Q1

REPORT INFORMATION
  Report Type: 
  Country: None (occurrence: None)
  Receive Date: 20090218
  Receipt Date: 20090212
  Transmission Date: 20090719
  Serious: Yes (Death)
  Sender: FDA-Public Use
  Company Number: CN-WATSON-2009-01101

PATIENT
  Age: 92 Year
  Sex: Male

DRUGS (2)
  1. COLCHICINE (WATSON LABORATORIES) [Suspect]
     Indication: GOUT
     Dosage: 0.5 MG, TID
     Route: 048
  2. CLARITHROMYCIN [Suspect]
     Indication: PNEUMONIA
     Dosage: 500 MG, BID
     Route: 048

REACTIONS (2)
  - DRUG INTERACTION [None]
  - DRUG TOXICITY [None]
